FAERS Safety Report 4832021-9 (Version None)
Quarter: 2005Q4

REPORT INFORMATION
  Report Type: 
  Country: None (occurrence: None)
  Receive Date: 20051116
  Receipt Date: 20051109
  Transmission Date: 20060501
  Serious: Yes (Hospitalization)
  Sender: FDA-Public Use
  Company Number: UKP05000365

PATIENT
  Sex: 0

DRUGS (1)
  1. DANTRIUM [Suspect]
     Dosage: ORAL
     Route: 048

REACTIONS (2)
  - DYSPHAGIA [None]
  - UNEVALUABLE EVENT [None]
